FAERS Safety Report 10015819 (Version 1)
Quarter: 2014Q1

REPORT INFORMATION
  Report Type: Spontaneous
  Country: US (occurrence: US)
  Receive Date: 20140317
  Receipt Date: 20140317
  Transmission Date: 20141002
  Serious: Yes (Other)
  Sender: FDA-Public Use
  Company Number: US-GLAXOSMITHKLINE-A1064938A

PATIENT
  Age: 64 Year
  Sex: Female

DRUGS (1)
  1. ADVAIR [Suspect]
     Indication: ASTHMA
     Dosage: 1PUFF PER DAY
     Route: 065

REACTIONS (7)
  - Fungal oesophagitis [Recovered/Resolved]
  - Oral fungal infection [Recovered/Resolved]
  - Oropharyngitis fungal [Recovered/Resolved]
  - Pruritus [Recovered/Resolved]
  - Swelling [Recovered/Resolved]
  - Hyperphagia [Recovered/Resolved]
  - Expired drug administered [Not Recovered/Not Resolved]
